FAERS Safety Report 9274248 (Version 1)
Quarter: 2013Q2

REPORT INFORMATION
  Report Type: Spontaneous
  Country: US (occurrence: US)
  Receive Date: 20130506
  Receipt Date: 20130506
  Transmission Date: 20140414
  Serious: No
  Sender: FDA-Public Use
  Company Number: US-AMGEN-USASP2013022641

PATIENT
  Age: 59 Year
  Sex: Female
  Weight: 73.92 kg

DRUGS (6)
  1. ENBREL [Suspect]
     Indication: PSORIASIS
     Dosage: 50 MG, 2 TIMES/WK
     Route: 058
     Dates: start: 20130306, end: 20130318
  2. ASPIRIN [Concomitant]
     Dosage: 81 MG, QD
     Route: 048
  3. NITROQUICK [Concomitant]
     Dosage: 0.4 MG, PRN
     Route: 060
  4. SIMVASTATIN [Concomitant]
     Indication: BLOOD CHOLESTEROL INCREASED
     Dosage: 40 MG, QD
     Route: 048
  5. OLUX [Concomitant]
     Dosage: 0.05 %, BID FOAM
     Route: 061
  6. TACLONEX [Concomitant]
     Dosage: UNK UNK, BID
     Route: 061

REACTIONS (1)
  - Cardiac stress test abnormal [Not Recovered/Not Resolved]
